FAERS Safety Report 7898688-6 (Version None)
Quarter: 2011Q4

REPORT INFORMATION
  Report Type: 
  Country: None (occurrence: None)
  Receive Date: 20111107
  Receipt Date: 20111102
  Transmission Date: 20120403
  Serious: Yes (Death)
  Sender: FDA-Public Use
  Company Number: GR-ASTRAZENECA-2011SE66238

PATIENT
  Age: 54 Year
  Sex: Female
  Weight: 69 kg

DRUGS (5)
  1. SALOSPIR [Concomitant]
     Indication: CEREBROVASCULAR ACCIDENT
     Route: 048
  2. DEPAKENE [Suspect]
     Indication: BIPOLAR DISORDER
     Route: 048
     Dates: start: 20100816
  3. SEROQUEL [Suspect]
     Indication: BIPOLAR DISORDER
     Route: 048
     Dates: start: 20110901
  4. ZOLOTRIN [Concomitant]
     Indication: DEPRESSION
     Route: 048
     Dates: start: 20110901
  5. TOPIRAMATE [Concomitant]
     Indication: MIGRAINE
     Route: 048
     Dates: start: 20100401

REACTIONS (1)
  - GASTROINTESTINAL NECROSIS [None]
